FAERS Safety Report 9921777 (Version 3)
Quarter: 2014Q1

REPORT INFORMATION
  Report Type: Spontaneous
  Country: None (occurrence: JP)
  Receive Date: 20140225
  Receipt Date: 20140328
  Transmission Date: 20141002
  Serious: Yes (Life-Threatening, Hospitalization)
  Sender: FDA-Public Use
  Company Number: JP-EISAI INC-E2020-13577-SPO-JP

PATIENT
  Age: 81 Year
  Sex: Male
  Weight: 59 kg

DRUGS (9)
  1. ARICEPT [Suspect]
     Indication: DEMENTIA
     Route: 048
     Dates: end: 20140219
  2. VESICARE [Interacting]
     Indication: PRODUCT USED FOR UNKNOWN INDICATION
     Route: 048
     Dates: end: 20140219
  3. PARIET [Concomitant]
     Indication: PRODUCT USED FOR UNKNOWN INDICATION
     Route: 048
  4. PRANLUKAST [Concomitant]
     Indication: PRODUCT USED FOR UNKNOWN INDICATION
  5. URSO [Concomitant]
     Indication: PRODUCT USED FOR UNKNOWN INDICATION
     Route: 048
  6. PROMAC [Concomitant]
     Indication: PRODUCT USED FOR UNKNOWN INDICATION
     Route: 048
  7. LIVACT [Concomitant]
     Indication: PRODUCT USED FOR UNKNOWN INDICATION
     Route: 048
  8. BAYASPIRIN [Concomitant]
     Indication: PRODUCT USED FOR UNKNOWN INDICATION
     Route: 048
  9. MAGMITT [Concomitant]
     Route: 048

REACTIONS (2)
  - Torsade de pointes [Recovering/Resolving]
  - Drug interaction [Recovering/Resolving]
